FAERS Safety Report 7329719-X (Version None)
Quarter: 2011Q1

REPORT INFORMATION
  Report Type: 
  Country: None (occurrence: None)
  Receive Date: 20110223
  Receipt Date: 20110208
  Transmission Date: 20110831
  Serious: Yes (Hospitalization)
  Sender: FDA-Public Use
  Company Number: 1000018889

PATIENT
  Age: 19 Year
  Sex: Female

DRUGS (3)
  1. MIRTAZAPINE [Concomitant]
  2. ESCITALOPRAM [Suspect]
     Dosage: 10 MG (10 MG, 1 IN 1 D), ORAL
     Route: 048
     Dates: start: 20110207
  3. CONTRACEPTIVES (CONTRACEPTIVES) (CONTRACEPTIVES) [Concomitant]

REACTIONS (7)
  - SENSE OF OPPRESSION [None]
  - TREMOR [None]
  - PAIN IN EXTREMITY [None]
  - HYPOAESTHESIA [None]
  - HOT FLUSH [None]
  - ARTHRALGIA [None]
  - OEDEMA PERIPHERAL [None]
